FAERS Safety Report 9485520 (Version 2)
Quarter: 2013Q3

REPORT INFORMATION
  Report Type: Spontaneous
  Country: US (occurrence: US)
  Receive Date: 20130829
  Receipt Date: 20130930
  Transmission Date: 20140515
  Serious: No
  Sender: FDA-Public Use
  Company Number: US-BIOGENIDEC-2013BI078550

PATIENT
  Age: 55 Year
  Sex: Female

DRUGS (3)
  1. TYSABRI [Suspect]
     Indication: MULTIPLE SCLEROSIS
     Route: 042
     Dates: start: 20130814
  2. AVONEX [Concomitant]
     Indication: MULTIPLE SCLEROSIS
     Route: 030
  3. AVONEX [Concomitant]
     Indication: MULTIPLE SCLEROSIS
     Route: 030
     Dates: start: 1996

REACTIONS (20)
  - Hypertonic bladder [Recovered/Resolved]
  - Vision blurred [Recovered/Resolved]
  - Optic neuritis [Recovered/Resolved]
  - Lip swelling [Not Recovered/Not Resolved]
  - Thirst [Not Recovered/Not Resolved]
  - Contusion [Not Recovered/Not Resolved]
  - Flatulence [Unknown]
  - Weight increased [Not Recovered/Not Resolved]
  - Urine output decreased [Not Recovered/Not Resolved]
  - Local swelling [Not Recovered/Not Resolved]
  - Swelling face [Not Recovered/Not Resolved]
  - Swelling [Not Recovered/Not Resolved]
  - Abdominal distension [Not Recovered/Not Resolved]
  - Toothache [Recovered/Resolved]
  - Hypertension [Unknown]
  - Hot flush [Recovered/Resolved with Sequelae]
  - Headache [Recovered/Resolved with Sequelae]
  - Pyrexia [Recovered/Resolved]
  - Nausea [Recovered/Resolved]
  - Fatigue [Recovered/Resolved with Sequelae]
